FAERS Safety Report 20376496 (Version 4)
Quarter: 2022Q2

REPORT INFORMATION
  Report Type: Report from Study
  Country: FR (occurrence: None)
  Receive Date: 20220125
  Receipt Date: 20220620
  Transmission Date: 20220721
  Serious: Yes (Hospitalization)
  Sender: FDA-Public Use
  Company Number: 2022A022228

PATIENT
  Age: 607 Month
  Sex: Female
  Weight: 57 kg

DRUGS (1)
  1. EVUSHELD [Suspect]
     Active Substance: CILGAVIMAB\TIXAGEVIMAB
     Indication: COVID-19 prophylaxis
     Dosage: TIXAGEVIMAB 150 MG/CILGAVIMAB 150 MG
     Route: 030
     Dates: start: 20211231

REACTIONS (4)
  - Hypersensitivity [Recovered/Resolved]
  - Dermatitis allergic [Recovered/Resolved]
  - Laryngeal oedema [Recovered/Resolved]
  - Pruritus [Recovered/Resolved]

NARRATIVE: CASE EVENT DATE: 20211231
